FAERS Safety Report 5257457-6 (Version None)
Quarter: 2007Q1

REPORT INFORMATION
  Report Type: 
  Country: None (occurrence: None)
  Receive Date: 20070307
  Receipt Date: 20060808
  Transmission Date: 20070707
  Serious: No
  Sender: FDA-Public Use
  Company Number: US-GLAXOSMITHKLINE-A0615801A

PATIENT
  Age: 58 Year
  Sex: Female

DRUGS (4)
  1. REQUIP [Suspect]
     Indication: RESTLESS LEGS SYNDROME
     Dosage: 2MG PER DAY
     Route: 048
     Dates: start: 20060101
  2. TRIAMTERENE AND HYDROCHLOROTHIAZIDE [Concomitant]
  3. MAXAIR [Concomitant]
  4. SINGULAIR [Concomitant]

REACTIONS (5)
  - DRUG INEFFECTIVE [None]
  - DYSPHONIA [None]
  - HANGOVER [None]
  - MIDDLE INSOMNIA [None]
  - SOMNOLENCE [None]
